FAERS Safety Report 4498843-1 (Version None)
Quarter: 2004Q4

REPORT INFORMATION
  Report Type: 
  Country: None (occurrence: None)
  Receive Date: 20041108
  Receipt Date: 20041027
  Transmission Date: 20050328
  Serious: Yes (Hospitalization)
  Sender: FDA-Public Use
  Company Number: 2004-UK-01104UK

PATIENT
  Age: 78 Year
  Sex: Female

DRUGS (6)
  1. DIPYRIDAMOLE [Suspect]
     Dosage: 200MG BD PO
     Route: 048
  2. ASPIRIN [Suspect]
     Dosage: 75MG ONCE DAILY PO
     Route: 048
  3. BENDROFLUAZIDE (BENDROFLUMETHIAZIDE) [Concomitant]
  4. SIMVASTATIN [Concomitant]
  5. LANSOPRAZOLE [Concomitant]
  6. HUMAN MONOTARD (INSULIN HUMAN ZINC SUSPENSION) [Concomitant]

REACTIONS (1)
  - HAEMATEMESIS [None]
